FAERS Safety Report 12639808 (Version 1)
Quarter: 2016Q3

REPORT INFORMATION
  Report Type: Report from Study
  Country: US (occurrence: US)
  Receive Date: 20160810
  Receipt Date: 20160810
  Transmission Date: 20161109
  Serious: Yes (Life-Threatening, Other)
  Sender: FDA-Public Use
  Company Number: US-ROCHE-1809010

PATIENT
  Age: 46 Year
  Sex: Female
  Weight: 56.4 kg

DRUGS (2)
  1. VISMODEGIB [Suspect]
     Active Substance: VISMODEGIB
     Indication: PANCREATIC CARCINOMA
     Route: 048
     Dates: start: 20101227, end: 20110215
  2. GEMCITABINE HYDROCHLORIDE. [Suspect]
     Active Substance: GEMCITABINE HYDROCHLORIDE
     Indication: PANCREATIC CARCINOMA
     Dosage: NEXT DOSE ON: 01/OCT/2010, 29/OCT/2010, 26/NOV/2010, 27/DEC/2010, 21/JAN/2011
     Route: 042
     Dates: start: 20100903, end: 20110215

REACTIONS (5)
  - CD4 lymphocytes decreased [Unknown]
  - Colostomy [Unknown]
  - Abdominal pain [Unknown]
  - Enterostomy [Unknown]
  - Anaemia [Unknown]
